FAERS Safety Report 8203990-4 (Version None)
Quarter: 2012Q1

REPORT INFORMATION
  Report Type: 
  Country: None (occurrence: None)
  Receive Date: 20120313
  Receipt Date: 20120308
  Transmission Date: 20120608
  Serious: Yes (Other)
  Sender: FDA-Public Use
  Company Number: US-PFIZER INC-2012062997

PATIENT
  Sex: Female
  Weight: 63.492 kg

DRUGS (10)
  1. ACETAMINOPHEN [Concomitant]
     Indication: PAIN
     Dosage: 650 MG, AS NEEDED
  2. ACETAMINOPHEN [Concomitant]
     Indication: PYREXIA
  3. CARBAMIDE PEROXIDE [Concomitant]
     Dosage: UNK, AS NEEDED
  4. BISACODYL [Concomitant]
     Dosage: UNK, AS NEEDED
  5. PREMARIN [Suspect]
     Indication: VULVAL DISORDER
     Dosage: UNK, DAILY
     Route: 067
  6. RENACIDIN [Concomitant]
     Dosage: UNK, AS NEEDED
  7. MAGNESIUM HYDROXIDE TAB [Concomitant]
     Dosage: UNK
  8. CALCIUM CARBONATE [Concomitant]
     Dosage: UNK
  9. ALBUTEROL [Concomitant]
     Dosage: UNK
  10. ASCORBIC ACID [Concomitant]
     Dosage: UNK

REACTIONS (1)
  - DEEP VEIN THROMBOSIS [None]
